FAERS Safety Report 17750956 (Version 2)
Quarter: 2020Q3

REPORT INFORMATION
  Report Type: Report from Study
  Country: US (occurrence: US)
  Receive Date: 20200506
  Receipt Date: 20200813
  Transmission Date: 20201102
  Serious: Yes (Death, Other)
  Sender: FDA-Public Use
  Company Number: US-CLOVIS ONCOLOGY-CLO-2020-000820

PATIENT
  Age: 67 Year
  Sex: Female

DRUGS (1)
  1. RUBRACA [Suspect]
     Active Substance: RUCAPARIB CAMSYLATE
     Indication: BREAST CANCER
     Dosage: 600 MG, BID
     Route: 048
     Dates: start: 20190822, end: 20200429

REACTIONS (2)
  - Product use in unapproved indication [Unknown]
  - Cardio-respiratory arrest [Fatal]

NARRATIVE: CASE EVENT DATE: 20190822
